FAERS Safety Report 5678910-7 (Version None)
Quarter: 2008Q1

REPORT INFORMATION
  Report Type: 
  Country: None (occurrence: None)
  Receive Date: 20080325
  Receipt Date: 20080320
  Transmission Date: 20080703
  Serious: Yes (Other)
  Sender: FDA-Public Use
  Company Number: US-ASTRAZENECA-2006UW08083

PATIENT
  Age: 47 Year
  Sex: Male
  Weight: 90.9 kg

DRUGS (3)
  1. SEROQUEL [Suspect]
     Indication: DEPRESSION
     Route: 048
     Dates: start: 20000501, end: 20050801
  2. SEROQUEL [Suspect]
     Indication: BIPOLAR DISORDER
     Route: 048
     Dates: start: 20000501, end: 20050801
  3. RISPERDAL [Concomitant]
     Dates: start: 20000101

REACTIONS (2)
  - DIABETES MELLITUS [None]
  - PNEUMOTHORAX [None]
